FAERS Safety Report 26153537 (Version 2)
Quarter: 2025Q4

REPORT INFORMATION
  Report Type: Report from Study
  Country: US (occurrence: US)
  Receive Date: 20251214
  Receipt Date: 20251216
  Transmission Date: 20260117
  Serious: Yes (Other)
  Sender: JOHNSON AND JOHNSON
  Company Number: US-JNJFOC-20251206108

PATIENT
  Age: 42 Year
  Sex: Female

DRUGS (5)
  1. GUSELKUMAB [Suspect]
     Active Substance: GUSELKUMAB
     Indication: Psoriatic arthropathy
     Dosage: GTIN NUMBER: 00357894640110 AND SERIAL NUMBER: 147192666150
     Route: 058
  2. GUSELKUMAB [Suspect]
     Active Substance: GUSELKUMAB
     Indication: Psoriasis
  3. GUSELKUMAB [Suspect]
     Active Substance: GUSELKUMAB
     Indication: Rheumatoid arthritis
  4. GUSELKUMAB [Suspect]
     Active Substance: GUSELKUMAB
     Indication: Lumbar spinal stenosis
  5. GUSELKUMAB [Suspect]
     Active Substance: GUSELKUMAB
     Indication: Intervertebral disc degeneration

REACTIONS (5)
  - Rheumatoid arthritis [Unknown]
  - Psoriatic arthropathy [Unknown]
  - Device deployment issue [Unknown]
  - Accidental exposure to product [Unknown]
  - Product dose omission issue [Unknown]

NARRATIVE: CASE EVENT DATE: 20251203
